FAERS Safety Report 25972655 (Version 1)
Quarter: 2025Q4

REPORT INFORMATION
  Report Type: Spontaneous
  Country: EU (occurrence: EU)
  Receive Date: 20251029
  Receipt Date: 20251029
  Transmission Date: 20260117
  Serious: Yes (Other)
  Sender: ACCORD
  Company Number: None

PATIENT
  Sex: Male
  Weight: 2.67 kg

DRUGS (1)
  1. SERTRALINE [Suspect]
     Active Substance: SERTRALINE HYDROCHLORIDE
     Dates: start: 202301, end: 202311

REACTIONS (4)
  - Infantile colic [Recovered/Resolved]
  - Hypertonia neonatal [Not Recovered/Not Resolved]
  - Small for dates baby [Recovered/Resolved]
  - Foetal exposure during pregnancy [Unknown]
